FAERS Safety Report 13948775 (Version 1)
Quarter: 2017Q3

REPORT INFORMATION
  Report Type: Spontaneous
  Country: IT (occurrence: IT)
  Receive Date: 20170908
  Receipt Date: 20170908
  Transmission Date: 20171128
  Serious: Yes (Other)
  Sender: FDA-Public Use
  Company Number: IT2017K0415SPO

PATIENT
  Age: 78 Year
  Sex: Female

DRUGS (5)
  1. LANSOPRAZOLE WORLD [Suspect]
     Active Substance: LANSOPRAZOLE
     Indication: HEAD AND NECK CANCER METASTATIC
     Dates: start: 20160317, end: 20160317
  2. FENTANIL ACTAVIS [Concomitant]
     Route: 062
  3. BRUFEN [Concomitant]
     Active Substance: IBUPROFEN
     Route: 048
  4. CETUXIMAB. [Suspect]
     Active Substance: CETUXIMAB
     Dates: start: 20160317, end: 20160317
  5. AULIN (NIMESULIDE) [Concomitant]
     Active Substance: NIMESULIDE
     Route: 048

REACTIONS (3)
  - Loss of consciousness [Recovered/Resolved]
  - Urticaria [Recovered/Resolved]
  - Off label use [Recovered/Resolved]

NARRATIVE: CASE EVENT DATE: 20160317
